FAERS Safety Report 16805961 (Version 2)
Quarter: 2022Q3

REPORT INFORMATION
  Report Type: Spontaneous
  Country: US (occurrence: None)
  Receive Date: 20190913
  Receipt Date: 20220726
  Transmission Date: 20221027
  Serious: Yes (Hospitalization)
  Sender: FDA-Public Use
  Company Number: 2019SF27729

PATIENT
  Age: 16 Year
  Sex: Male
  Weight: 58.1 kg

DRUGS (9)
  1. SYMBICORT [Suspect]
     Active Substance: BUDESONIDE\FORMOTEROL FUMARATE DIHYDRATE
     Indication: Asthma
     Dosage: 2X/DAY
     Route: 055
     Dates: start: 20190501
  2. ENTOCORT [Suspect]
     Active Substance: BUDESONIDE
     Route: 048
  3. ABROCITINIB [Suspect]
     Active Substance: ABROCITINIB
     Indication: Dermatitis atopic
     Route: 048
     Dates: start: 20180718
  4. SINGULAIR [Suspect]
     Active Substance: MONTELUKAST SODIUM
     Indication: Seasonal allergy
     Route: 048
     Dates: start: 20190501
  5. SPIRIVA [Suspect]
     Active Substance: TIOTROPIUM BROMIDE MONOHYDRATE
     Route: 065
  6. ALBUTEROL [Suspect]
     Active Substance: ALBUTEROL
     Indication: Asthma
     Dosage: 25MG/3ML, AS NEEDED
     Route: 048
  7. PF-04965842/PLACEBO [Concomitant]
     Indication: Dermatitis atopic
     Dates: start: 20180418
  8. CONCERTA [Concomitant]
     Active Substance: METHYLPHENIDATE HYDROCHLORIDE
     Dates: start: 2008
  9. ZOLOFT [Concomitant]
     Active Substance: SERTRALINE HYDROCHLORIDE
     Dates: start: 2014

REACTIONS (1)
  - Asthma [Recovered/Resolved]

NARRATIVE: CASE EVENT DATE: 20190513
